FAERS Safety Report 8806178 (Version 1)
Quarter: 2012Q4

REPORT INFORMATION
  Report Type: 
  Country: GB (occurrence: GB)
  Receive Date: 20120925
  Receipt Date: 20120925
  Transmission Date: 20130627
  Serious: Yes (Other)
  Sender: FDA-Public Use
  Company Number: PHHY2012GB082042

PATIENT

DRUGS (3)
  1. CICLOSPORIN [Suspect]
     Indication: PROPHYLAXIS AGAINST GRAFT VERSUS HOST DISEASE
  2. METHOTREXATE [Suspect]
     Indication: PROPHYLAXIS AGAINST GRAFT VERSUS HOST DISEASE
  3. IMMUNOGLOBULINS [Concomitant]
     Route: 042

REACTIONS (15)
  - Mucosal inflammation [Unknown]
  - Ascites [Unknown]
  - Hepatosplenomegaly [Unknown]
  - Coagulopathy [Unknown]
  - Respiratory failure [Unknown]
  - Venoocclusive disease [Unknown]
  - Gastroduodenitis [Unknown]
  - Learning disorder [Unknown]
  - Autism [Unknown]
  - Diarrhoea [Unknown]
  - Febrile neutropenia [Unknown]
  - Renal failure [Unknown]
  - Jaundice [Unknown]
  - Bronchiolitis [Unknown]
  - Graft versus host disease in skin [Unknown]
